FAERS Safety Report 21795048 (Version 1)
Quarter: 2022Q4

REPORT INFORMATION
  Report Type: Report from Study
  Country: JP (occurrence: JP)
  Receive Date: 20221229
  Receipt Date: 20221229
  Transmission Date: 20230113
  Serious: Yes (Other)
  Sender: FDA-Public Use
  Company Number: JP-PFIZER INC-2016570109

PATIENT
  Age: 9 Year
  Sex: Male
  Weight: 18.7 kg

DRUGS (7)
  1. SIROLIMUS [Suspect]
     Active Substance: SIROLIMUS
     Indication: Lymphangioma
     Dosage: 1 MG, 1X/DAY (1 MG,1 D)
     Route: 048
     Dates: start: 20150302, end: 20150408
  2. SIROLIMUS [Suspect]
     Active Substance: SIROLIMUS
     Dosage: 1.5 MG, 1X/DAY (1.5 MG,1 D)
     Route: 048
     Dates: start: 20150408, end: 20150624
  3. SIROLIMUS [Suspect]
     Active Substance: SIROLIMUS
     Dosage: 1 MG, 1X/DAY (1 MG,1 D)
     Route: 048
     Dates: start: 20150625
  4. LASIX [Concomitant]
     Active Substance: FUROSEMIDE
     Indication: Lymphangioma
     Dosage: UNK
     Route: 048
  5. SPIRONOLACTONE [Concomitant]
     Active Substance: SPIRONOLACTONE
     Indication: Lymphangioma
     Dosage: UNK
     Route: 048
  6. PROPRANOLOL HYDROCHLORIDE [Concomitant]
     Active Substance: PROPRANOLOL HYDROCHLORIDE
     Indication: Lymphangioma
     Dosage: UNK
     Route: 048
  7. SULFAMETHOXAZOLE\TRIMETHOPRIM [Concomitant]
     Active Substance: SULFAMETHOXAZOLE\TRIMETHOPRIM
     Indication: Lymphangioma
     Dosage: UNK
     Route: 048

REACTIONS (4)
  - Immunoglobulins decreased [Unknown]
  - Upper respiratory tract inflammation [Recovered/Resolved]
  - Condition aggravated [Unknown]
  - Off label use [Unknown]

NARRATIVE: CASE EVENT DATE: 20150610
